FAERS Safety Report 4490752-7 (Version None)
Quarter: 2004Q4

REPORT INFORMATION
  Report Type: 
  Country: None (occurrence: None)
  Receive Date: 20041102
  Receipt Date: 20041025
  Transmission Date: 20050328
  Serious: Yes (Death, Hospitalization)
  Sender: FDA-Public Use
  Company Number: US-BRISTOL-MYERS SQUIBB COMPANY-12742623

PATIENT
  Age: 53 Year
  Sex: Male

DRUGS (2)
  1. WARFARIN SODIUM [Suspect]
  2. UNFRACTIONATED HEPARIN [Suspect]
     Route: 042

REACTIONS (17)
  - ANTITHROMBIN III DECREASED [None]
  - BLOOD THROMBIN INCREASED [None]
  - COAGULATION FACTOR VII LEVEL DECREASED [None]
  - COAGULATION FACTOR X LEVEL DECREASED [None]
  - CYANOSIS [None]
  - EXTREMITY NECROSIS [None]
  - GANGRENE [None]
  - INTERNATIONAL NORMALISED RATIO INCREASED [None]
  - LUNG ADENOCARCINOMA [None]
  - MALIGNANT NEOPLASM PROGRESSION [None]
  - PLATELET COUNT DECREASED [None]
  - PROTEIN C DECREASED [None]
  - PROTEIN S DECREASED [None]
  - PROTHROMBIN LEVEL DECREASED [None]
  - SKIN NECROSIS [None]
  - THROMBIN-ANTITHROMBIN III COMPLEX INCREASED [None]
  - THROMBOSIS [None]
